FAERS Safety Report 7096624-6 (Version None)
Quarter: 2010Q4

REPORT INFORMATION
  Report Type: 
  Country: None (occurrence: None)
  Receive Date: 20101027
  Receipt Date: 20101011
  Transmission Date: 20110411
  Serious: Yes (Other)
  Sender: FDA-Public Use
  Company Number: GAM-302-10-DE

PATIENT
  Age: 36 Year
  Sex: Female

DRUGS (6)
  1. OCTAGAM [Suspect]
     Indication: IMMUNOMODULATORY THERAPY
     Dosage: 10 G I.V.
     Route: 042
     Dates: start: 20100818, end: 20100818
  2. ACETYLSALICYLIC ACID [Concomitant]
  3. ENOXAPARIN SODIUM [Concomitant]
  4. MEDYN FORTE (VITAMIN B12, VITAMIN B6 AND FOLIC ACID) [Concomitant]
  5. JODID 100 (POTASSIUM IODIDE) [Concomitant]
  6. UTROGEST (PROGESTERONE) [Concomitant]

REACTIONS (4)
  - BLOOD FIBRINOGEN INCREASED [None]
  - COAGULATION FACTOR VIII LEVEL INCREASED [None]
  - DRUG EXPOSURE DURING PREGNANCY [None]
  - FIBRIN D DIMER INCREASED [None]
